FAERS Safety Report 19333032 (Version 2)
Quarter: 2021Q2

REPORT INFORMATION
  Report Type: Report from Study
  Country: CO (occurrence: CO)
  Receive Date: 20210529
  Receipt Date: 20210610
  Transmission Date: 20210717
  Serious: Yes (Hospitalization, Other)
  Sender: FDA-Public Use
  Company Number: NVSC2021CO114440

PATIENT
  Sex: Female
  Weight: 57 kg

DRUGS (2)
  1. KISQALI [Suspect]
     Active Substance: RIBOCICLIB
     Indication: BREAST CANCER METASTATIC
     Dosage: 600 MG, QD (3X200 MG)
     Route: 048
     Dates: start: 2018, end: 202104
  2. FEMARA [Suspect]
     Active Substance: LETROZOLE
     Indication: BREAST CANCER
     Dosage: 2.5 MG, QD
     Route: 048
     Dates: start: 2017, end: 202104

REACTIONS (4)
  - Skin injury [Unknown]
  - Pain [Unknown]
  - Acne [Unknown]
  - Skin lesion [Unknown]
